FAERS Safety Report 11590518 (Version 1)
Quarter: 2015Q4

REPORT INFORMATION
  Report Type: Spontaneous
  Country: GB (occurrence: GB)
  Receive Date: 20151002
  Receipt Date: 20151002
  Transmission Date: 20160304
  Serious: Yes (Other)
  Sender: FDA-Public Use
  Company Number: GB-TEVA-597619USA

PATIENT
  Age: 29 Year
  Sex: Female

DRUGS (1)
  1. LEVONELLE [Suspect]
     Active Substance: LEVONORGESTREL
     Indication: CONTRACEPTION
     Dates: start: 20150907, end: 20150907

REACTIONS (3)
  - Abdominal pain [Recovered/Resolved]
  - Hypomenorrhoea [Not Recovered/Not Resolved]
  - Mood altered [Recovered/Resolved]

NARRATIVE: CASE EVENT DATE: 20150907
